FAERS Safety Report 25757904 (Version 1)
Quarter: 2025Q3

REPORT INFORMATION
  Report Type: Spontaneous
  Country: CN (occurrence: CN)
  Receive Date: 20250903
  Receipt Date: 20250903
  Transmission Date: 20251020
  Serious: Yes (Other)
  Sender: NOVARTIS
  Company Number: CN-002147023-NVSC2025CN134268

PATIENT
  Age: 9 Year
  Sex: Female
  Weight: 22.5 kg

DRUGS (1)
  1. KESIMPTA [Suspect]
     Active Substance: OFATUMUMAB
     Indication: Symptomatic treatment
     Dosage: 20 MG, QD (INJECTION, INTRAVENOUS DRIP)
     Route: 058
     Dates: start: 20250704, end: 20250704

REACTIONS (5)
  - Rash [Recovering/Resolving]
  - Cough [Recovering/Resolving]
  - Dyspnoea [Recovering/Resolving]
  - Abdominal pain [Recovering/Resolving]
  - Off label use [Unknown]

NARRATIVE: CASE EVENT DATE: 20250704
